FAERS Safety Report 13002892 (Version 1)
Quarter: 2016Q4

REPORT INFORMATION
  Report Type: Spontaneous
  Country: US (occurrence: US)
  Receive Date: 20161205
  Receipt Date: 20161205
  Transmission Date: 20170207
  Serious: Yes (Life-Threatening, Disabling, Other)
  Sender: FDA-Public Use
  Company Number: None

PATIENT
  Age: 60 Year
  Sex: Female
  Weight: 94.5 kg

DRUGS (5)
  1. CALCIUM 500 SUPPLEMENTS [Concomitant]
  2. METFORMIN ER 500 MG TABLET TEVA USA [Suspect]
     Active Substance: METFORMIN HYDROCHLORIDE
     Indication: DIABETES MELLITUS
     Dosage: ?          QUANTITY:1 TABLET(S);?
     Route: 048
     Dates: start: 20160709, end: 20160908
  3. LISINOPRIL. [Concomitant]
     Active Substance: LISINOPRIL
  4. WARFARIN [Concomitant]
     Active Substance: WARFARIN
  5. ADVIL [Concomitant]
     Active Substance: IBUPROFEN

REACTIONS (14)
  - Decreased activity [None]
  - Food intolerance [None]
  - Thrombosis [None]
  - Swelling face [None]
  - Product substitution issue [None]
  - Nausea [None]
  - Pharyngeal oedema [None]
  - Cough [None]
  - Lip swelling [None]
  - Lacrimation increased [None]
  - Heart rate increased [None]
  - Dizziness [None]
  - Rhinorrhoea [None]
  - Diarrhoea [None]

NARRATIVE: CASE EVENT DATE: 20160709
